FAERS Safety Report 7355987-4 (Version None)
Quarter: 2011Q1

REPORT INFORMATION
  Report Type: 
  Country: None (occurrence: None)
  Receive Date: 20110316
  Receipt Date: 20110216
  Transmission Date: 20110831
  Serious: No
  Sender: FDA-Public Use
  Company Number: US-ABBOTT-11P-163-0706555-00

PATIENT
  Sex: Male
  Weight: 93.978 kg

DRUGS (12)
  1. FOLIC ACID [Concomitant]
     Indication: VITAMIN SUPPLEMENTATION
  2. LOPRESSOR [Concomitant]
     Indication: HYPERTENSION
  3. ASPIRIN [Concomitant]
     Indication: CARDIAC DISORDER
  4. VITAMIN B6 [Concomitant]
     Indication: VITAMIN SUPPLEMENTATION
  5. SYNTHROID [Concomitant]
     Indication: HYPOTHYROIDISM
  6. TRILIPIX [Suspect]
     Indication: HIGH DENSITY LIPOPROTEIN DECREASED
     Dates: start: 20110215, end: 20110215
  7. VITAMIN B-12 [Concomitant]
     Indication: VITAMIN SUPPLEMENTATION
  8. NORVASC [Concomitant]
     Indication: HYPERTENSION
  9. LOVASTATIN [Concomitant]
     Indication: BLOOD CHOLESTEROL INCREASED
  10. QUINAPRIL [Concomitant]
     Indication: HYPERTENSION
  11. PLAVIX [Concomitant]
     Indication: CARDIAC OPERATION
  12. ALLOPURINOL [Concomitant]
     Indication: BLOOD URIC ACID INCREASED

REACTIONS (1)
  - ABDOMINAL PAIN UPPER [None]
